FAERS Safety Report 15525076 (Version 2)
Quarter: 2018Q4

REPORT INFORMATION
  Report Type: Report from Study
  Country: US (occurrence: US)
  Receive Date: 20181019
  Receipt Date: 20181029
  Transmission Date: 20190205
  Serious: Yes (Other)
  Sender: FDA-Public Use
  Company Number: US-TEVA-2018-US-964557

PATIENT
  Age: 44 Year
  Sex: Female

DRUGS (1)
  1. COPAXONE [Suspect]
     Active Substance: GLATIRAMER ACETATE
     Indication: MULTIPLE SCLEROSIS
     Route: 058
     Dates: start: 20180818, end: 20181010

REACTIONS (12)
  - Dizziness [Recovered/Resolved]
  - Swelling face [Recovered/Resolved]
  - Ear swelling [Recovered/Resolved]
  - Palpitations [Recovered/Resolved]
  - Chills [Recovered/Resolved]
  - Flushing [Recovered/Resolved]
  - Ear discomfort [Recovered/Resolved]
  - Nausea [Recovered/Resolved]
  - Micturition urgency [Recovered/Resolved]
  - Vomiting [Recovered/Resolved]
  - Diarrhoea [Recovered/Resolved]
  - Therapy change [Unknown]

NARRATIVE: CASE EVENT DATE: 20181010
